FAERS Safety Report 6250540-8 (Version None)
Quarter: 2009Q2

REPORT INFORMATION
  Report Type: 
  Country: None (occurrence: None)
  Receive Date: 20090630
  Receipt Date: 20090623
  Transmission Date: 20091009
  Serious: Yes (Other)
  Sender: FDA-Public Use
  Company Number: CA-PFIZER INC-2009230979

PATIENT
  Age: 49 Year

DRUGS (5)
  1. LIPITOR [Suspect]
     Indication: BLOOD CHOLESTEROL INCREASED
     Dosage: 20 MG, UNK
     Route: 048
     Dates: start: 20080701
  2. LIPITOR [Suspect]
     Indication: TYPE 2 DIABETES MELLITUS
  3. CRESTOR [Suspect]
     Indication: BLOOD CHOLESTEROL INCREASED
     Dosage: 10 MG, UNK
     Route: 048
     Dates: start: 20060101, end: 20060101
  4. CRESTOR [Suspect]
     Indication: TYPE 2 DIABETES MELLITUS
  5. DIAMICRON [Concomitant]
     Indication: TYPE 2 DIABETES MELLITUS
     Dosage: 80 MG, 3X/DAY

REACTIONS (1)
  - ERECTILE DYSFUNCTION [None]
